FAERS Safety Report 22184483 (Version 4)
Quarter: 2023Q2

REPORT INFORMATION
  Report Type: Spontaneous
  Country: ES (occurrence: ES)
  Receive Date: 20230407
  Receipt Date: 20230523
  Transmission Date: 20230721
  Serious: Yes (Other)
  Sender: FDA-Public Use
  Company Number: None

PATIENT
  Age: 41 Year
  Sex: Female

DRUGS (5)
  1. CIMZIA [Suspect]
     Active Substance: CERTOLIZUMAB PEGOL
     Indication: Serpiginous choroiditis
     Dosage: 200 MILLIGRAM, EV 2 WEEKS(QOW)
  2. CIMZIA [Suspect]
     Active Substance: CERTOLIZUMAB PEGOL
     Indication: Off label use
  3. ADALIMUMAB [Suspect]
     Active Substance: ADALIMUMAB
     Indication: Serpiginous choroiditis
     Dosage: 40 MILLIGRAM, WEEKLY (QW)
     Route: 058
  4. ADALIMUMAB [Suspect]
     Active Substance: ADALIMUMAB
     Dosage: 40 MILLIGRAM, EV 2 WEEKS(QOW), FOR 23 MONTHS
     Route: 058
  5. ADALIMUMAB [Suspect]
     Active Substance: ADALIMUMAB
     Dosage: 40 MILLIGRAM, MONTHLY (QM) FOR 10 MONTHS

REACTIONS (3)
  - Lupus-like syndrome [Recovered/Resolved]
  - Urticaria [Unknown]
  - Off label use [Unknown]
